FAERS Safety Report 21586329 (Version 4)
Quarter: 2022Q4

REPORT INFORMATION
  Report Type: Spontaneous
  Country: US (occurrence: US)
  Receive Date: 20221112
  Receipt Date: 20221207
  Transmission Date: 20230113
  Serious: No
  Sender: FDA-Public Use
  Company Number: US-UNITED THERAPEUTICS-UNT-2022-027100

PATIENT
  Sex: Male
  Weight: 9.977 kg

DRUGS (5)
  1. REMODULIN [Suspect]
     Active Substance: TREPROSTINIL
     Indication: Pulmonary arterial hypertension
     Dosage: UNK, CONTINUING
     Route: 058
     Dates: start: 20221024
  2. REMODULIN [Suspect]
     Active Substance: TREPROSTINIL
     Dosage: 0.031 ?G/KG, CONTINUING (SELF-FILL WITH 1.7ML CASSETTE. REMUNITY PUMP AT RATE OF 16MCL PER HOUR)
     Route: 058
     Dates: start: 2022
  3. REMODULIN [Suspect]
     Active Substance: TREPROSTINIL
     Dosage: UNK
  4. AMBRISENTAN [Concomitant]
     Active Substance: AMBRISENTAN
     Indication: Product used for unknown indication
     Dosage: UNK
     Route: 065
  5. TADALAFIL [Concomitant]
     Active Substance: TADALAFIL
     Indication: Product used for unknown indication
     Dosage: UNK
     Route: 065

REACTIONS (11)
  - Infusion site haemorrhage [Unknown]
  - Infusion site erythema [Unknown]
  - Infusion site irritation [Unknown]
  - Respiration abnormal [Unknown]
  - Infusion site pain [Unknown]
  - Device dislocation [Unknown]
  - Device failure [Unknown]
  - Device wireless communication issue [Unknown]
  - Therapy non-responder [Unknown]
  - Device maintenance issue [Unknown]
  - Device dislocation [Unknown]

NARRATIVE: CASE EVENT DATE: 20220101
